FAERS Safety Report 9351066 (Version 5)
Quarter: 2013Q4

REPORT INFORMATION
  Report Type: Report from Study
  Country: DE (occurrence: DE)
  Receive Date: 20130617
  Receipt Date: 20131206
  Transmission Date: 20140711
  Serious: Yes (Life-Threatening, Hospitalization, Other)
  Sender: FDA-Public Use
  Company Number: DE-CELGENEUS-062-21660-13060973

PATIENT
  Age: 61 Year
  Sex: Female
  Weight: 69 kg

DRUGS (8)
  1. ABRAXANE [Suspect]
     Indication: BREAST CANCER
     Route: 041
     Dates: start: 20130409, end: 20130423
  2. EPIRUBICINE [Suspect]
     Indication: BREAST CANCER
     Route: 041
     Dates: start: 20130226, end: 20130326
  3. CYCLOPHOSPHAMIDE [Suspect]
     Indication: BREAST CANCER
     Route: 041
     Dates: start: 20130521, end: 20130618
  4. APREPITANT [Concomitant]
     Indication: PRODUCT USED FOR UNKNOWN INDICATION
     Route: 065
  5. PALONOSETRON [Concomitant]
     Indication: PRODUCT USED FOR UNKNOWN INDICATION
     Route: 065
  6. PEGFILGRASTIM [Concomitant]
     Indication: PRODUCT USED FOR UNKNOWN INDICATION
     Route: 065
  7. MESNA [Concomitant]
     Indication: PRODUCT USED FOR UNKNOWN INDICATION
     Dosage: 2100 MILLIGRAM
     Route: 065
     Dates: start: 20130618, end: 20130618
  8. PEGFILGASTIM [Concomitant]
     Indication: PRODUCT USED FOR UNKNOWN INDICATION
     Dosage: 6 MILLIGRAM
     Route: 065
     Dates: start: 20130619, end: 20130619

REACTIONS (2)
  - Leukopenia [Recovered/Resolved]
  - Pancytopenia [Recovered/Resolved]
